FAERS Safety Report 7247840-1 (Version None)
Quarter: 2011Q1

REPORT INFORMATION
  Report Type: 
  Country: None (occurrence: None)
  Receive Date: 20110127
  Receipt Date: 20110114
  Transmission Date: 20110831
  Serious: Yes (Hospitalization)
  Sender: FDA-Public Use
  Company Number: ES-ELI_LILLY_AND_COMPANY-ES201101003708

PATIENT
  Sex: Female
  Weight: 95 kg

DRUGS (13)
  1. XERISTAR [Concomitant]
     Indication: DEPRESSION
     Dosage: UNK, DAILY (1/D)
     Route: 048
  2. FORTEO [Suspect]
     Indication: OSTEOPOROSIS
     Dosage: 20 UG, DAILY (1/D)
     Route: 058
     Dates: start: 20100519
  3. TIONER [Concomitant]
     Indication: PAIN
     Dosage: UNK, EVERY 8 HRS
     Route: 048
  4. CAPTOPRIL [Concomitant]
     Indication: HYPERTENSION
     Dosage: UNK, 2/D
     Route: 048
  5. DIOVAN [Concomitant]
     Indication: HYPERTENSION
     Dosage: UNK, DAILY (1/D)
     Route: 048
  6. OMEPRAZOLE [Concomitant]
     Dosage: UNK, DAILY (1/D)
     Route: 048
  7. METAMIZOL [Concomitant]
     Indication: PAIN
     Dosage: UNK, AS NEEDED
     Route: 048
  8. DEPRELIO [Concomitant]
     Indication: DEPRESSION
     Dosage: UNK, DAILY (1/D)
     Route: 048
  9. NORVASC [Concomitant]
     Indication: HYPERTENSION
     Dosage: UNK, DAILY (1/D)
     Route: 048
  10. SUTRIL [Concomitant]
     Indication: POLYURIA
     Dosage: UNK, DAILY (1/D)
     Route: 048
  11. PARACETAMOL [Concomitant]
     Indication: PAIN
     Dosage: UNK, EVERY 8 HRS
     Route: 048
  12. CLEXANE [Concomitant]
     Dosage: UNK, DAILY (1/D)
     Route: 058
     Dates: start: 20101101
  13. FLEBOSTASIN [Concomitant]
     Dosage: UNK, 2/8H
     Route: 048

REACTIONS (2)
  - FALL [None]
  - FEMUR FRACTURE [None]
